FAERS Safety Report 16993937 (Version 2)
Quarter: 2019Q4

REPORT INFORMATION
  Report Type: Report from Study
  Country: None (occurrence: CA)
  Receive Date: 20191105
  Receipt Date: 20191125
  Transmission Date: 20200122
  Serious: Yes (Death, Hospitalization, Other)
  Sender: FDA-Public Use
  Company Number: CA-ABBVIE-19K-028-2991298-00

PATIENT
  Age: 56 Year
  Sex: Male
  Weight: 96 kg

DRUGS (7)
  1. ROSUVASTATIN. [Concomitant]
     Active Substance: ROSUVASTATIN
     Indication: BLOOD CHOLESTEROL INCREASED
     Route: 048
     Dates: start: 2018
  2. VENETOCLAX. [Suspect]
     Active Substance: VENETOCLAX
     Indication: MYELODYSPLASTIC SYNDROME
     Route: 048
     Dates: start: 20191009, end: 20191028
  3. PANTOPRAZOLE [Concomitant]
     Active Substance: PANTOPRAZOLE
     Indication: GASTROOESOPHAGEAL REFLUX DISEASE
     Route: 048
     Dates: start: 2018
  4. VALACYCLOVIR [Concomitant]
     Active Substance: VALACYCLOVIR HYDROCHLORIDE
     Indication: INFECTION PROPHYLAXIS
     Route: 048
     Dates: start: 2019, end: 20191029
  5. IRBESARTAN. [Concomitant]
     Active Substance: IRBESARTAN
     Indication: HYPERTENSION
     Route: 048
     Dates: start: 2018
  6. NORTRIPTYLINE [Concomitant]
     Active Substance: NORTRIPTYLINE
     Indication: SLEEP DISORDER
     Dosage: AT BEDTIME
     Dates: start: 2018
  7. NARATRIPTAN [Concomitant]
     Active Substance: NARATRIPTAN HYDROCHLORIDE
     Indication: SLEEP DISORDER
     Dosage: PRN
     Dates: start: 2018

REACTIONS (3)
  - Myelodysplastic syndrome [Fatal]
  - Abdominal pain [Unknown]
  - Lymphoma [Unknown]

NARRATIVE: CASE EVENT DATE: 2019
